FAERS Safety Report 8200579-8 (Version None)
Quarter: 2012Q1

REPORT INFORMATION
  Report Type: 
  Country: None (occurrence: None)
  Receive Date: 20120312
  Receipt Date: 20120228
  Transmission Date: 20120608
  Serious: Yes (Hospitalization)
  Sender: FDA-Public Use
  Company Number: GB-RANBAXY-2011R1-45319

PATIENT
  Age: 53 Year
  Sex: Female
  Weight: 96 kg

DRUGS (6)
  1. DIAZEPAM [Suspect]
     Indication: PRODUCT USED FOR UNKNOWN INDICATION
     Dosage: UNK
     Route: 048
  2. SULPIRIDE [Concomitant]
     Indication: PRODUCT USED FOR UNKNOWN INDICATION
     Dosage: 1000 MG, QD
     Route: 048
  3. LORAZEPAM [Suspect]
     Indication: PRODUCT USED FOR UNKNOWN INDICATION
     Dosage: 1 MG, QD
     Route: 048
  4. LITHIUM CARBONATE [Concomitant]
     Indication: PRODUCT USED FOR UNKNOWN INDICATION
     Dosage: 600 MG, QD
     Route: 048
  5. VALPROIC ACID [Suspect]
     Indication: PRODUCT USED FOR UNKNOWN INDICATION
     Dosage: 600 MG, QD
     Route: 048
  6. CLOZARIL [Suspect]
     Indication: PRODUCT USED FOR UNKNOWN INDICATION
     Dosage: 250 MG, QD
     Route: 048

REACTIONS (3)
  - ANXIETY [None]
  - DYSPNOEA [None]
  - HYPERVENTILATION [None]
